FAERS Safety Report 4323559-1 (Version None)
Quarter: 2004Q1

REPORT INFORMATION
  Report Type: 
  Country: None (occurrence: None)
  Receive Date: 20040325
  Receipt Date: 20040312
  Transmission Date: 20041129
  Serious: Yes (Life-Threatening, Hospitalization, Disabling)
  Sender: FDA-Public Use
  Company Number: WAES 0403GBR00160

PATIENT
  Age: 75 Year
  Sex: Female

DRUGS (4)
  1. ACETAMINOPHEN AND PROPOXYPHENE HYDROCHLORIDE [Concomitant]
     Indication: PAIN
     Route: 048
  2. HYZAAR [Suspect]
     Indication: HYPERTENSION
     Route: 048
     Dates: start: 20030821, end: 20040226
  3. NIFEDIPINE [Concomitant]
     Indication: HYPERTENSION
     Route: 048
     Dates: start: 20030801
  4. SPIRONOLACTONE [Suspect]
     Indication: HYPERTENSION
     Route: 048
     Dates: start: 20040129, end: 20040226

REACTIONS (4)
  - ARTERIAL OCCLUSIVE DISEASE [None]
  - DRUG INTERACTION [None]
  - HAEMODIALYSIS [None]
  - RENAL FAILURE ACUTE [None]
